FAERS Safety Report 18179700 (Version 1)
Quarter: 2020Q3

REPORT INFORMATION
  Report Type: Spontaneous
  Country: PL (occurrence: PL)
  Receive Date: 20200821
  Receipt Date: 20200821
  Transmission Date: 20201103
  Serious: Yes (Other)
  Sender: FDA-Public Use
  Company Number: PL-ACCORD-196170

PATIENT
  Age: 36 Year
  Sex: Female
  Weight: 81.5 kg

DRUGS (7)
  1. CISPLATIN. [Suspect]
     Active Substance: CISPLATIN
     Indication: OVARIAN CANCER
     Route: 042
     Dates: start: 20190603, end: 20190603
  2. PYRALGINUM [Concomitant]
     Active Substance: METAMIZOLE SODIUM
     Indication: OVARIAN CANCER
     Route: 042
     Dates: start: 20190603, end: 20190603
  3. ONDANSETRON [Concomitant]
     Active Substance: ONDANSETRON
     Indication: OVARIAN CANCER
     Dosage: DOSAGE: 2MG/ML
     Route: 042
     Dates: start: 20190603, end: 20190603
  4. ETOPOSIDE. [Concomitant]
     Active Substance: ETOPOSIDE
     Indication: OVARIAN CANCER
     Route: 042
     Dates: start: 20190603, end: 20190603
  5. SODIUM CHLORIDE. [Concomitant]
     Active Substance: SODIUM CHLORIDE
     Indication: OVARIAN CANCER
     Dosage: STRENGTH: 0.9%
     Route: 042
     Dates: start: 20190603, end: 20190603
  6. FUROSEMIDE. [Concomitant]
     Active Substance: FUROSEMIDE
     Indication: OVARIAN CANCER
     Dosage: DOSAGE: 0.02G/2ML
     Route: 042
     Dates: start: 20190603, end: 20190603
  7. PLASMALYTE [Concomitant]
     Active Substance: ELECTROLYTES NOS
     Indication: OVARIAN CANCER
     Route: 042
     Dates: start: 20190603, end: 20190603

REACTIONS (4)
  - Dyspnoea [Recovering/Resolving]
  - Blood pressure increased [Recovering/Resolving]
  - Pain [Recovering/Resolving]
  - Heart rate abnormal [Recovering/Resolving]

NARRATIVE: CASE EVENT DATE: 20190603
